FAERS Safety Report 9454114 (Version 1)
Quarter: 2013Q3

REPORT INFORMATION
  Report Type: Spontaneous
  Country: US (occurrence: None)
  Receive Date: 20130809
  Receipt Date: 20130809
  Transmission Date: 20140515
  Serious: Yes (Hospitalization)
  Sender: FDA-Public Use
  Company Number: None

PATIENT
  Age: 76 Year
  Sex: Male
  Weight: 124 kg

DRUGS (13)
  1. PACLITAXEL POLIGLUMEX [Suspect]
     Indication: GLIOBLASTOMA MULTIFORME
     Dosage: 114 MG  IV  Q WEEK
     Route: 042
     Dates: start: 20130701, end: 20130729
  2. WARFARIN [Concomitant]
  3. ACETAMINOPHEN [Concomitant]
  4. LEVETIRACETAM [Concomitant]
  5. OXYCODONE [Concomitant]
  6. DIGOXIN [Concomitant]
  7. FLUTICASONE-SALMETEROL [Concomitant]
  8. FUROSEMIDE [Concomitant]
  9. LISINOPRIL [Concomitant]
  10. METFORMIN [Concomitant]
  11. METOPROLOL TARTRATE [Concomitant]
  12. POTASSIUM CHLORIDE [Concomitant]
  13. DOCUSATE SODIUM [Concomitant]

REACTIONS (7)
  - Neutrophil count decreased [None]
  - Mental status changes [None]
  - Hyporesponsive to stimuli [None]
  - Convulsion [None]
  - Aphasia [None]
  - Tumour haemorrhage [None]
  - Haemorrhage intracranial [None]
